FAERS Safety Report 9397170 (Version 2)
Quarter: 2013Q4

REPORT INFORMATION
  Report Type: Report from Study
  Country: US (occurrence: US)
  Receive Date: 20130712
  Receipt Date: 20131112
  Transmission Date: 20140711
  Serious: Yes (Other)
  Sender: FDA-Public Use
  Company Number: PHEH2012US019358

PATIENT
  Age: 63 Year
  Sex: Male

DRUGS (4)
  1. GLEEVEC [Suspect]
     Indication: CHRONIC MYELOID LEUKAEMIA
     Dosage: 400 MG, QD
     Route: 048
     Dates: start: 201208
  2. GLEEVEC [Suspect]
     Dosage: UNK
     Route: 048
     Dates: start: 20130116
  3. GLEEVEC [Suspect]
     Dosage: 400 MG, DAILY
     Route: 048
     Dates: start: 20130603
  4. INSULIN [Concomitant]
     Indication: DIABETES MELLITUS
     Dosage: UNK UKN, UNK

REACTIONS (6)
  - Hypergammaglobulinaemia [Unknown]
  - White blood cell count increased [Unknown]
  - Blood pressure decreased [Unknown]
  - Fall [Unknown]
  - Skin discolouration [Unknown]
  - Swelling [Unknown]
